FAERS Safety Report 21172068 (Version 2)
Quarter: 2022Q3

REPORT INFORMATION
  Report Type: Spontaneous
  Country: US (occurrence: None)
  Receive Date: 20220804
  Receipt Date: 20220816
  Transmission Date: 20221027
  Serious: Yes (Other)
  Sender: FDA-Public Use
  Company Number: US-ROCHE-3152892

PATIENT
  Age: 1 Year
  Sex: Male

DRUGS (5)
  1. HEMLIBRA [Suspect]
     Active Substance: EMICIZUMAB-KXWH
     Indication: Factor VIII deficiency
     Dosage: INJECT ONE VIAL UNDER THE SKIN EVERY 14 DAYS
     Route: 058
     Dates: start: 20210727
  2. ADVATE [Concomitant]
     Active Substance: ANTIHEMOPHILIC FACTOR, HUMAN RECOMBINANT
  3. A-HYDROCORT [Concomitant]
     Active Substance: HYDROCORTISONE SODIUM SUCCINATE
  4. SODIUM CHLORIDE [Concomitant]
     Active Substance: SODIUM CHLORIDE
  5. SODIUM CHLORIDE [Concomitant]
     Active Substance: SODIUM CHLORIDE

REACTIONS (2)
  - Haemorrhage [Recovered/Resolved]
  - Head injury [Recovered/Resolved]

NARRATIVE: CASE EVENT DATE: 20220713
